FAERS Safety Report 16875775 (Version 1)
Quarter: 2019Q4

REPORT INFORMATION
  Report Type: Spontaneous
  Country: US (occurrence: US)
  Receive Date: 20191001
  Receipt Date: 20191001
  Transmission Date: 20200122
  Serious: Yes (Other)
  Sender: FDA-Public Use
  Company Number: None

PATIENT
  Sex: Female
  Weight: 78.75 kg

DRUGS (1)
  1. MYRBETRIQ [Suspect]
     Active Substance: MIRABEGRON
     Indication: INCONTINENCE
     Dosage: ?          QUANTITY:1 TABLET(S);?
     Route: 048

REACTIONS (4)
  - Dizziness [None]
  - Treatment failure [None]
  - Nausea [None]
  - Decreased appetite [None]
